FAERS Safety Report 21546236 (Version 1)
Quarter: 2022Q4

REPORT INFORMATION
  Report Type: Other
  Country: GB (occurrence: GB)
  Receive Date: 20221103
  Receipt Date: 20221103
  Transmission Date: 20230113
  Serious: Yes (Other)
  Sender: FDA-Public Use
  Company Number: None

PATIENT
  Age: 86 Year
  Sex: Female
  Weight: 54 kg

DRUGS (14)
  1. COLCHICINE [Suspect]
     Active Substance: COLCHICINE
     Indication: Product used for unknown indication
     Dosage: 1500 MICROGRAM (TABLET (UNCOATED, ORAL) (PER DAY)
     Route: 048
     Dates: start: 20220818
  2. ANUSOL [BISMUTH OXIDE;BISMUTH SUBGALLATE;ZINC OXIDE] [Concomitant]
     Indication: Product used for unknown indication
     Dosage: UNK (APPLY AS DIRECTED )
     Route: 065
     Dates: start: 20220822, end: 20220829
  3. HYPROMELLOSES [Concomitant]
     Active Substance: HYPROMELLOSES
     Indication: Product used for unknown indication
     Dosage: UNK (NOCTE)
     Route: 065
     Dates: start: 20210216
  4. ATENOLOL [Concomitant]
     Active Substance: ATENOLOL
     Indication: Blood pressure measurement
     Dosage: 1 DOSAGE FORM (PER DAY)
     Route: 065
     Dates: start: 20210216
  5. ATORVASTATIN [Concomitant]
     Active Substance: ATORVASTATIN
     Indication: Blood cholesterol
     Dosage: 1 DOSAGE FORM (PER DAY)
     Route: 065
     Dates: start: 20210216
  6. IBUPROFEN [Concomitant]
     Active Substance: IBUPROFEN
     Indication: Product used for unknown indication
     Dosage: UNK(APPLY 3-4 TIMES/DAY )
     Route: 065
     Dates: start: 20210216, end: 20221019
  7. FLUCLOXACILLIN [Concomitant]
     Active Substance: FLUCLOXACILLIN
     Indication: Product used for unknown indication
     Dosage: 4 DOSAGE FORM (PER DAY)
     Route: 065
     Dates: start: 20220817, end: 20220824
  8. OMEPRAZOLE [Concomitant]
     Active Substance: OMEPRAZOLE
     Indication: Dyspepsia
     Dosage: 1 DOSAGE FORM (PER DAY) (TABLET (UNCOATED, ORAL) )
     Route: 048
     Dates: start: 20210216
  9. CARBOXYMETHYLCELLULOSE SODIUM\GLYCERIN [Concomitant]
     Active Substance: CARBOXYMETHYLCELLULOSE SODIUM\GLYCERIN
     Indication: Product used for unknown indication
     Dosage: 3 DOSAGE FORM (PER DAY)
     Route: 065
     Dates: start: 20210216, end: 20221019
  10. ACETAMINOPHEN [Concomitant]
     Active Substance: ACETAMINOPHEN
     Indication: Product used for unknown indication
     Dosage: 2 DOSAGE FORM, EVERY 4 HRS
     Route: 065
     Dates: start: 20210216
  11. PROCHLORPERAZINE [Concomitant]
     Active Substance: PROCHLORPERAZINE
     Indication: Product used for unknown indication
     Dosage: 3 DOSAGE FORM (PER DAY)
     Route: 065
     Dates: start: 20220929, end: 20220930
  12. RAMIPRIL [Concomitant]
     Active Substance: RAMIPRIL
     Indication: Blood pressure measurement
     Dosage: 1 DOSAGE FORM (PER DAY)
     Route: 065
     Dates: start: 20220511
  13. TRIMETHOPRIM [Concomitant]
     Active Substance: TRIMETHOPRIM
     Indication: Product used for unknown indication
     Dosage: 2 DOSAGE FORM (PER DAY)
     Route: 065
     Dates: start: 20220929, end: 20221002
  14. CARBOXYMETHYLCELLULOSE [Concomitant]
     Active Substance: CARBOXYMETHYLCELLULOSE
     Indication: Product used for unknown indication
     Dosage: UNK
     Route: 065
     Dates: start: 20221019

REACTIONS (2)
  - Faeces discoloured [Recovered/Resolved]
  - Diarrhoea [Recovered/Resolved]

NARRATIVE: CASE EVENT DATE: 20221019
